FAERS Safety Report 13433680 (Version 1)
Quarter: 2017Q2

REPORT INFORMATION
  Report Type: Report from Study
  Country: CA (occurrence: CA)
  Receive Date: 20170412
  Receipt Date: 20170412
  Transmission Date: 20170830
  Serious: Yes (Other)
  Sender: FDA-Public Use
  Company Number: CA-JNJFOC-20170211205

PATIENT
  Age: 33 Year
  Sex: Male
  Weight: 103 kg

DRUGS (1)
  1. REMICADE [Suspect]
     Active Substance: INFLIXIMAB
     Indication: COLITIS ULCERATIVE
     Route: 042
     Dates: start: 20140731, end: 20170407

REACTIONS (5)
  - Lupus-like syndrome [Unknown]
  - Arthralgia [Not Recovered/Not Resolved]
  - Muscle injury [Recovering/Resolving]
  - Pain [Not Recovered/Not Resolved]
  - Oedema [Recovering/Resolving]

NARRATIVE: CASE EVENT DATE: 20170131
